FAERS Safety Report 8226842-2 (Version None)
Quarter: 2012Q1

REPORT INFORMATION
  Report Type: 
  Country: None (occurrence: None)
  Receive Date: 20120322
  Receipt Date: 20120313
  Transmission Date: 20120608
  Serious: No
  Sender: FDA-Public Use
  Company Number: US-BAYER-2012-025328

PATIENT
  Age: 40 Year
  Sex: Male

DRUGS (5)
  1. CLONIDINE [Concomitant]
  2. CARDIZEM [Concomitant]
  3. ZYPREXA [Concomitant]
  4. LEVITRA [Suspect]
     Dosage: 10 MG, UNK
     Route: 048
     Dates: start: 20120301
  5. LISINOPRIL [Concomitant]

REACTIONS (2)
  - HEADACHE [None]
  - ERYTHEMA [None]
